FAERS Safety Report 4374554-8 (Version None)
Quarter: 2004Q2

REPORT INFORMATION
  Report Type: 
  Country: None (occurrence: None)
  Receive Date: 20040609
  Receipt Date: 20040512
  Transmission Date: 20050107
  Serious: Yes (Hospitalization)
  Sender: FDA-Public Use
  Company Number: US-MERCK-0405USA01948B2

PATIENT
  Sex: Male
  Weight: 1 kg

DRUGS (2)
  1. BETAMETHASONE [Concomitant]
     Indication: PREMATURE LABOUR
  2. INDOCIN [Suspect]
     Indication: PREMATURE LABOUR

REACTIONS (14)
  - CAESAREAN SECTION [None]
  - CARDIOMEGALY [None]
  - CONGENITAL ATRIAL SEPTAL DEFECT [None]
  - DRUG EXPOSURE DURING PREGNANCY [None]
  - DRUG INEFFECTIVE [None]
  - FOETAL DISORDER [None]
  - HEART DISEASE CONGENITAL [None]
  - HYPOXIA [None]
  - MITRAL VALVE INCOMPETENCE [None]
  - NEONATAL RESPIRATORY DISTRESS SYNDROME [None]
  - PULMONARY ALVEOLAR HAEMORRHAGE [None]
  - PULMONARY ARTERY DILATATION [None]
  - PULMONARY HYPERTENSION [None]
  - TRICUSPID VALVE INCOMPETENCE [None]
